FAERS Safety Report 8082829-4 (Version None)
Quarter: 2012Q1

REPORT INFORMATION
  Report Type: 
  Country: None (occurrence: None)
  Receive Date: 20120127
  Receipt Date: 20110213
  Transmission Date: 20120608
  Serious: No
  Sender: FDA-Public Use
  Company Number: US-ABBOTT-11P-163-0705142-00

PATIENT
  Age: 63 Year
  Sex: Female

DRUGS (4)
  1. ACETAMINOPHEN [Concomitant]
     Indication: PAIN
  2. CELEXA [Concomitant]
     Indication: PAIN
  3. VETERINARY LINAMENT GEL [Concomitant]
     Indication: PAIN
  4. HUMIRA [Suspect]
     Indication: ANKYLOSING SPONDYLITIS
     Dates: start: 20110101

REACTIONS (2)
  - DRUG EFFECT DECREASED [None]
  - PAIN [None]
